FAERS Safety Report 7050887-1 (Version None)
Quarter: 2010Q4

REPORT INFORMATION
  Report Type: 
  Country: None (occurrence: None)
  Receive Date: 20101019
  Receipt Date: 20101006
  Transmission Date: 20110411
  Serious: No
  Sender: FDA-Public Use
  Company Number: 2009BI014104

PATIENT
  Sex: Female

DRUGS (4)
  1. TYSABRI [Suspect]
     Indication: MULTIPLE SCLEROSIS
     Route: 042
     Dates: start: 20090325, end: 20090624
  2. TYSABRI [Suspect]
     Route: 042
     Dates: start: 20091118
  3. NOVALOG [Concomitant]
     Indication: DIABETES MELLITUS
  4. GLIMEPIRIDE [Concomitant]
     Indication: DIABETES MELLITUS

REACTIONS (17)
  - ASTHENIA [None]
  - BALANCE DISORDER [None]
  - BLOOD URINE PRESENT [None]
  - CYSTITIS [None]
  - DIZZINESS [None]
  - FALL [None]
  - FATIGUE [None]
  - GINGIVAL PAIN [None]
  - HEAD INJURY [None]
  - HYPERSOMNIA [None]
  - HYPOAESTHESIA [None]
  - JUDGEMENT IMPAIRED [None]
  - LOSS OF CONSCIOUSNESS [None]
  - MUSCULAR WEAKNESS [None]
  - NAUSEA [None]
  - PAIN IN EXTREMITY [None]
  - TOOTHACHE [None]
